FAERS Safety Report 7207209-2 (Version None)
Quarter: 2011Q1

REPORT INFORMATION
  Report Type: 
  Country: None (occurrence: None)
  Receive Date: 20110103
  Receipt Date: 20101228
  Transmission Date: 20110831
  Serious: Yes (Other)
  Sender: FDA-Public Use
  Company Number: JP-ROCHE-748691

PATIENT
  Sex: Female

DRUGS (14)
  1. PREDONINE [Concomitant]
     Route: 048
  2. MUCOSTA [Concomitant]
     Route: 048
  3. ACTEMRA [Suspect]
     Route: 041
     Dates: start: 20091030, end: 20091030
  4. LUPRAC [Concomitant]
     Route: 048
  5. AMLODIPINE [Concomitant]
     Route: 048
  6. EVISTA [Concomitant]
     Route: 048
  7. ACTEMRA [Suspect]
     Route: 041
     Dates: start: 20090921, end: 20090921
  8. ACTEMRA [Suspect]
     Route: 041
     Dates: start: 20091224, end: 20091224
  9. ACTEMRA [Suspect]
     Route: 041
     Dates: start: 20091126, end: 20091126
  10. ACTEMRA [Suspect]
     Dosage: THERAPY POST PONE
     Route: 041
     Dates: start: 20100225
  11. TAKEPRON [Concomitant]
     Dosage: PERORAL AGENT
     Route: 048
  12. ACTEMRA [Suspect]
     Route: 041
     Dates: start: 20100128, end: 20100128
  13. ACTEMRA [Suspect]
     Indication: RHEUMATOID ARTHRITIS
     Route: 041
     Dates: start: 20090826, end: 20090826
  14. DIART [Concomitant]
     Route: 048

REACTIONS (1)
  - HAEMATURIA [None]
